FAERS Safety Report 5214879-7 (Version None)
Quarter: 2007Q1

REPORT INFORMATION
  Report Type: 
  Country: None (occurrence: None)
  Receive Date: 20070122
  Receipt Date: 20070122
  Transmission Date: 20070707
  Serious: Yes (Hospitalization, Other)
  Sender: FDA-Public Use
  Company Number: None

PATIENT
  Sex: Male

DRUGS (5)
  1. REVLIMID [Suspect]
     Indication: MULTIPLE MYELOMA
     Dosage: 10MG FOR 21 DAYS PO
     Route: 048
  2. ATIVAN [Concomitant]
  3. TERAZOSIN HCL [Concomitant]
  4. PROCRIT [Concomitant]
  5. ALLOPURINOL SODIUM [Concomitant]

REACTIONS (2)
  - CELLULITIS [None]
  - PLATELET COUNT DECREASED [None]
